FAERS Safety Report 6826886-9 (Version None)
Quarter: 2010Q3

REPORT INFORMATION
  Report Type: 
  Country: None (occurrence: None)
  Receive Date: 20100709
  Receipt Date: 20100629
  Transmission Date: 20110219
  Serious: Yes (Hospitalization)
  Sender: FDA-Public Use
  Company Number: DE-ELI_LILLY_AND_COMPANY-DE201006007740

PATIENT
  Age: 70 Year
  Sex: Female

DRUGS (12)
  1. FORTEO [Suspect]
     Indication: OSTEOPOROSIS
     Dosage: 20 UG, UNKNOWN
     Route: 058
  2. ARAVA [Concomitant]
     Dosage: 20 MG, UNK
  3. CLEXANE [Concomitant]
     Dosage: 80 MG, UNK
  4. PALLADONE [Concomitant]
     Dosage: 1.3 MG, UNK
  5. PALLADONE [Concomitant]
  6. TOLPERISONE [Concomitant]
  7. PREDNISOLON [Concomitant]
     Dosage: 5 MG, UNK
  8. IDEOS [Concomitant]
  9. METOCLOPRAMID [Concomitant]
  10. LYRICA [Concomitant]
  11. FERROUS SULFATE TAB [Concomitant]
  12. FOSTER                             /00500401/ [Suspect]

REACTIONS (1)
  - PAIN IN EXTREMITY [None]
